FAERS Safety Report 5136388-6 (Version None)
Quarter: 2006Q4

REPORT INFORMATION
  Report Type: 
  Country: None (occurrence: None)
  Receive Date: 20061027
  Receipt Date: 20060815
  Transmission Date: 20070319
  Serious: Yes (Life-Threatening, Hospitalization)
  Sender: FDA-Public Use
  Company Number: JP-BRISTOL-MYERS SQUIBB COMPANY-13512561

PATIENT
  Age: 83 Year
  Sex: Female

DRUGS (3)
  1. ABILIFY [Suspect]
     Indication: SCHIZOPHRENIA
     Route: 048
     Dates: start: 20060728, end: 20060803
  2. PEROSPIRONE [Suspect]
     Route: 048
     Dates: start: 20050101, end: 20060727
  3. BIPERIDEN HYDROCHLORIDE TAB [Concomitant]
     Route: 048
     Dates: end: 20060911

REACTIONS (2)
  - DIARRHOEA [None]
  - HYPERTENSIVE ENCEPHALOPATHY [None]
